FAERS Safety Report 12286977 (Version 2)
Quarter: 2016Q2

REPORT INFORMATION
  Report Type: Spontaneous
  Country: BE (occurrence: BE)
  Receive Date: 20160420
  Receipt Date: 20160509
  Transmission Date: 20160815
  Serious: Yes (Other)
  Sender: FDA-Public Use
  Company Number: PHHY2016BE050172

PATIENT
  Age: 4 Year
  Sex: Female

DRUGS (3)
  1. RILATINE [Suspect]
     Active Substance: METHYLPHENIDATE HYDROCHLORIDE
     Indication: ABNORMAL BEHAVIOUR
     Dosage: 5 MG, QD, IN MORNING
     Route: 048
     Dates: start: 20160331, end: 20160402
  2. RILATINE [Suspect]
     Active Substance: METHYLPHENIDATE HYDROCHLORIDE
     Dosage: 5 MG, BID (1 IN THE MORNING AND 1 AT NOON)
     Route: 065
     Dates: start: 20160403
  3. RILATINE [Suspect]
     Active Substance: METHYLPHENIDATE HYDROCHLORIDE
     Dosage: 5 MG, (DOSAGE DECREASED AND UP TO HALF A TABLET A DAY)
     Route: 065
     Dates: end: 20160422

REACTIONS (3)
  - Anxiety [Recovering/Resolving]
  - Obsessive-compulsive disorder [Recovering/Resolving]
  - Psychotic disorder [Recovering/Resolving]

NARRATIVE: CASE EVENT DATE: 20160403
